FAERS Safety Report 16388085 (Version 1)
Quarter: 2019Q2

REPORT INFORMATION
  Report Type: Spontaneous
  Country: US (occurrence: US)
  Receive Date: 20190427
  Receipt Date: 20190427
  Transmission Date: 20190711
  Serious: Yes (Hospitalization)
  Sender: FDA-Public Use
  Company Number: None

PATIENT
  Age: 80 Year
  Sex: Female
  Weight: 60.3 kg

DRUGS (2)
  1. FEMARA [Suspect]
     Active Substance: LETROZOLE
     Dates: end: 20190420
  2. PALBOCICLIB (PD-0332991) [Suspect]
     Active Substance: PALBOCICLIB
     Dates: end: 20190420

REACTIONS (4)
  - Mucosal inflammation [None]
  - Neutrophil count decreased [None]
  - Dysphagia [None]
  - Oesophageal candidiasis [None]

NARRATIVE: CASE EVENT DATE: 20190420
